FAERS Safety Report 21321941 (Version 1)
Quarter: 2022Q3

REPORT INFORMATION
  Report Type: Spontaneous
  Country: US (occurrence: US)
  Receive Date: 20220912
  Receipt Date: 20220912
  Transmission Date: 20221027
  Serious: No
  Sender: FDA-Public Use
  Company Number: US-MYLANLABS-2022M1092042

PATIENT
  Sex: Male
  Weight: 31.75 kg

DRUGS (2)
  1. METHYLPHENIDATE [Suspect]
     Active Substance: METHYLPHENIDATE
     Indication: Attention deficit hyperactivity disorder
     Dosage: 15 MILLIGRAM, PER 9 HOURS
     Route: 065
     Dates: start: 202207
  2. METHYLPHENIDATE [Suspect]
     Active Substance: METHYLPHENIDATE
     Indication: Autism spectrum disorder

REACTIONS (4)
  - Application site erythema [Unknown]
  - Product adhesion issue [Unknown]
  - Disturbance in attention [Unknown]
  - Abnormal behaviour [Unknown]
